FAERS Safety Report 14565442 (Version 1)
Quarter: 2018Q1

REPORT INFORMATION
  Report Type: Spontaneous
  Country: US (occurrence: US)
  Receive Date: 20180223
  Receipt Date: 20180223
  Transmission Date: 20180509
  Serious: No
  Sender: FDA-Public Use
  Company Number: US-LUPIN PHARMACEUTICALS INC.-2017-07308

PATIENT
  Sex: Female

DRUGS (1)
  1. CELECOXIB CAPSULES 50 MG [Suspect]
     Active Substance: CELECOXIB
     Indication: PAIN
     Dosage: 50 MG, UNK
     Route: 065

REACTIONS (3)
  - Gastrooesophageal reflux disease [Unknown]
  - Fatigue [Unknown]
  - Nausea [Unknown]
